FAERS Safety Report 23850356 (Version 1)
Quarter: 2024Q2

REPORT INFORMATION
  Report Type: Spontaneous
  Country: US (occurrence: US)
  Receive Date: 20240513
  Receipt Date: 20240513
  Transmission Date: 20240716
  Serious: No
  Sender: FDA-Public Use
  Company Number: US-PharmaLex US Corporation-2156919

PATIENT
  Sex: Female
  Weight: 88 kg

DRUGS (1)
  1. CYTALUX [Suspect]
     Active Substance: PAFOLACIANINE SODIUM
     Indication: Product used for unknown indication
     Route: 042
     Dates: start: 20240318, end: 20240318

REACTIONS (2)
  - Nausea [Unknown]
  - Vomiting [Unknown]
